FAERS Safety Report 10411684 (Version 1)
Quarter: 2014Q3

REPORT INFORMATION
  Report Type: Report from Study
  Country: ZA (occurrence: ZA)
  Receive Date: 20140827
  Receipt Date: 20140827
  Transmission Date: 20150326
  Serious: Yes (Hospitalization, Other)
  Sender: FDA-Public Use
  Company Number: ZA-BAYER-2014-090926

PATIENT
  Sex: Female

DRUGS (2)
  1. BETAFERON [Suspect]
     Active Substance: INTERFERON BETA-1B
     Indication: MULTIPLE SCLEROSIS
     Dosage: 0.5 ML, UNK
  2. LYRICA [Concomitant]
     Active Substance: PREGABALIN

REACTIONS (24)
  - Injection site erythema [None]
  - Hypoaesthesia [None]
  - Gastroenteritis [None]
  - Drug dose omission [None]
  - Injection site rash [None]
  - Multiple sclerosis [None]
  - Laryngitis [None]
  - Paraesthesia [None]
  - Headache [Recovering/Resolving]
  - Multiple sclerosis relapse [None]
  - Cholecystectomy [None]
  - Vomiting [None]
  - Bronchitis [None]
  - Injection site pain [None]
  - Sarcoidosis [None]
  - Paraesthesia [None]
  - Headache [None]
  - Fatigue [None]
  - Multiple sclerosis relapse [None]
  - Drug hypersensitivity [None]
  - Influenza like illness [Recovered/Resolved]
  - Rash pruritic [Recovered/Resolved]
  - Vision blurred [None]
  - Multiple sclerosis relapse [None]

NARRATIVE: CASE EVENT DATE: 2009
